FAERS Safety Report 7797615-X (Version None)
Quarter: 2011Q4

REPORT INFORMATION
  Report Type: 
  Country: None (occurrence: None)
  Receive Date: 20111005
  Receipt Date: 20110927
  Transmission Date: 20120403
  Serious: Yes (Hospitalization)
  Sender: FDA-Public Use
  Company Number: FR-AMGEN-FRASP2011049693

PATIENT
  Age: 84 Year
  Sex: Female

DRUGS (8)
  1. ISOPTIN [Concomitant]
  2. DEXAMETHASONE [Concomitant]
  3. RANIPLEX                           /00550801/ [Concomitant]
  4. PULMICORT [Concomitant]
  5. ONDANSETRON [Concomitant]
  6. VECTIBIX [Suspect]
     Indication: COLON CANCER METASTATIC
     Dosage: 20 MG/ML, UNK
     Route: 042
     Dates: start: 20110823
  7. POLARAMINE [Concomitant]
  8. SEREVENT [Concomitant]

REACTIONS (2)
  - HYPERTENSION [None]
  - DYSPNOEA [None]
